FAERS Safety Report 9654459 (Version 3)
Quarter: 2014Q3

REPORT INFORMATION
  Report Type: Spontaneous
  Country: US (occurrence: US)
  Receive Date: 20131029
  Receipt Date: 20140709
  Transmission Date: 20150326
  Serious: Yes (Hospitalization, Disabling, Other)
  Sender: FDA-Public Use
  Company Number: US-009507513-1310USA010659

PATIENT
  Sex: Female
  Weight: 83.9 kg

DRUGS (2)
  1. NUVARING [Suspect]
     Active Substance: ETHINYL ESTRADIOL\ETONOGESTREL
     Indication: DYSMENORRHOEA
     Dosage: UNK
     Route: 067
     Dates: start: 20090115, end: 20110208
  2. NUVARING [Suspect]
     Active Substance: ETHINYL ESTRADIOL\ETONOGESTREL
     Indication: CONTRACEPTION

REACTIONS (15)
  - Mitral valve incompetence [Unknown]
  - Headache [Unknown]
  - Stress [Unknown]
  - Cough [Unknown]
  - Cough [Unknown]
  - Decreased interest [Unknown]
  - Tricuspid valve incompetence [Unknown]
  - Viral infection [Unknown]
  - Embolism venous [Unknown]
  - Insomnia [Unknown]
  - Feeling abnormal [Unknown]
  - Constipation [Unknown]
  - Off label use [Unknown]
  - Gastrooesophageal reflux disease [Unknown]
  - Anxiety [Unknown]

NARRATIVE: CASE EVENT DATE: 20090115
